FAERS Safety Report 8621953-1 (Version None)
Quarter: 2012Q3

REPORT INFORMATION
  Report Type: 
  Country: None (occurrence: None)
  Receive Date: 20120823
  Receipt Date: 20120823
  Transmission Date: 20120928
  Serious: No
  Sender: FDA-Public Use
  Company Number: None

PATIENT
  Age: 70 Year
  Sex: Male

DRUGS (1)
  1. CARBOPLATIN [Suspect]
     Indication: NON-SMALL CELL LUNG CANCER
     Dosage: 270MG Q2WKS IV
     Route: 042

REACTIONS (6)
  - WHEEZING [None]
  - COUGH [None]
  - HYPERHIDROSIS [None]
  - ERYTHEMA [None]
  - HEART RATE INCREASED [None]
  - BLOOD PRESSURE INCREASED [None]
